FAERS Safety Report 5328287-1 (Version None)
Quarter: 2007Q2

REPORT INFORMATION
  Report Type: 
  Country: None (occurrence: None)
  Receive Date: 20070515
  Receipt Date: 20070515
  Transmission Date: 20071010
  Serious: Yes (Other)
  Sender: FDA-Public Use
  Company Number: None

PATIENT
  Age: 42 Year
  Sex: Male
  Weight: 114.3065 kg

DRUGS (2)
  1. ZYBAN [Suspect]
     Indication: SMOKING CESSATION THERAPY
     Dosage: 1/DAY PO
     Route: 048
     Dates: start: 20050202, end: 20050204
  2. ZYBAN [Suspect]
     Indication: SMOKING CESSATION THERAPY
     Dosage: 1/DAY PO
     Route: 048
     Dates: start: 20050214, end: 20050215

REACTIONS (1)
  - DEAFNESS TRANSITORY [None]
